FAERS Safety Report 15033876 (Version 1)
Quarter: 2018Q2

REPORT INFORMATION
  Report Type: Report from Study
  Country: None (occurrence: US)
  Receive Date: 20180620
  Receipt Date: 20180620
  Transmission Date: 20180711
  Serious: Yes (Hospitalization)
  Sender: FDA-Public Use
  Company Number: US-ABBVIE-17K-163-2074846-00

PATIENT
  Age: 72 Year
  Sex: Male

DRUGS (3)
  1. HUMIRA [Suspect]
     Active Substance: ADALIMUMAB
     Indication: PSORIASIS
     Dosage: DAY 1
     Route: 058
     Dates: start: 20170802, end: 20170802
  2. HUMIRA [Suspect]
     Active Substance: ADALIMUMAB
     Route: 058
     Dates: start: 2017, end: 2018
  3. HUMIRA [Suspect]
     Active Substance: ADALIMUMAB
     Route: 058
     Dates: start: 20180613

REACTIONS (10)
  - Parkinson^s disease [Unknown]
  - Anger [Unknown]
  - Frustration tolerance decreased [Unknown]
  - Emotional distress [Unknown]
  - Skin irritation [Unknown]
  - Helplessness [Unknown]
  - Psoriasis [Recovered/Resolved]
  - Gastrointestinal haemorrhage [Unknown]
  - Cerebrovascular accident [Unknown]
  - Psoriasis [Unknown]

NARRATIVE: CASE EVENT DATE: 201708
